FAERS Safety Report 8018699-X (Version None)
Quarter: 2012Q1

REPORT INFORMATION
  Report Type: 
  Country: None (occurrence: None)
  Receive Date: 20120103
  Receipt Date: 20120103
  Transmission Date: 20120608
  Serious: Yes (Life-Threatening, Hospitalization, Other)
  Sender: FDA-Public Use
  Company Number: None

PATIENT
  Age: 17 Year
  Sex: Female
  Weight: 90.718 kg

DRUGS (1)
  1. SUPRAX [Suspect]
     Indication: SINUSITIS
     Dosage: 400MG
     Dates: start: 20111025, end: 20111029

REACTIONS (2)
  - MALAISE [None]
  - PLATELET COUNT DECREASED [None]
